FAERS Safety Report 7522524-0 (Version None)
Quarter: 2011Q2

REPORT INFORMATION
  Report Type: 
  Country: None (occurrence: None)
  Receive Date: 20110603
  Receipt Date: 20110502
  Transmission Date: 20111010
  Serious: No
  Sender: FDA-Public Use
  Company Number: US-BAYER-2011-038747

PATIENT
  Sex: Male

DRUGS (3)
  1. ALEVE (CAPLET) [Suspect]
     Indication: HEADACHE
     Route: 048
  2. LORTAB [Concomitant]
     Indication: HEADACHE
     Route: 048
  3. TYLENOL PM [Concomitant]
     Indication: HEADACHE
     Route: 048

REACTIONS (1)
  - HEADACHE [None]
